FAERS Safety Report 24867280 (Version 1)
Quarter: 2025Q1

REPORT INFORMATION
  Report Type: Spontaneous
  Country: US (occurrence: US)
  Receive Date: 20250121
  Receipt Date: 20250121
  Transmission Date: 20250409
  Serious: No
  Sender: PERRIGO
  Company Number: US-PERRIGO-24US012105

PATIENT

DRUGS (1)
  1. NICOTINE POLACRILEX [Suspect]
     Active Substance: NICOTINE
     Indication: Product used for unknown indication
     Route: 002

REACTIONS (5)
  - Pharyngeal swelling [Unknown]
  - Malaise [Unknown]
  - Hiccups [Unknown]
  - Wrong technique in product usage process [Unknown]
  - Underdose [Unknown]
